FAERS Safety Report 4383086-2 (Version None)
Quarter: 2004Q2

REPORT INFORMATION
  Report Type: 
  Country: None (occurrence: None)
  Receive Date: 20040618
  Receipt Date: 20040604
  Transmission Date: 20050107
  Serious: Yes (Death)
  Sender: FDA-Public Use
  Company Number: 04P-028-0262927-00

PATIENT
  Age: 52 Year
  Sex: Female

DRUGS (6)
  1. NIMBEX [Suspect]
     Indication: ANAESTHESIA
  2. THIOPENTAL SODIUM [Suspect]
     Indication: ANAESTHESIA
  3. ISOFLURANE [Concomitant]
  4. FENTANYL [Concomitant]
  5. CORTISONE [Concomitant]
  6. ANTIBIOTICS [Concomitant]

REACTIONS (1)
  - RESPIRATORY FAILURE [None]
